FAERS Safety Report 13237417 (Version 2)
Quarter: 2017Q1

REPORT INFORMATION
  Report Type: Report from Study
  Country: GB (occurrence: GB)
  Receive Date: 20170215
  Receipt Date: 20170315
  Transmission Date: 20170428
  Serious: Yes (Other)
  Sender: FDA-Public Use
  Company Number: GB-B.I. PHARMACEUTICALS,INC./RIDGEFIELD-2017-BI-005027

PATIENT
  Age: 58 Year
  Sex: Male
  Weight: 91.8 kg

DRUGS (12)
  1. RAMIPRIL. [Concomitant]
     Active Substance: RAMIPRIL
     Indication: HYPERTENSION
     Route: 048
  2. INDAPAMIDE. [Concomitant]
     Active Substance: INDAPAMIDE
     Indication: CARDIAC DISORDER
     Route: 065
     Dates: end: 20161109
  3. GRISEOFULVIN. [Concomitant]
     Active Substance: GRISEOFULVIN
     Indication: ONYCHOMYCOSIS
     Route: 048
     Dates: start: 20160811
  4. CARBAMAZAPINE [Concomitant]
     Active Substance: CARBAMAZEPINE
     Indication: PAIN IN EXTREMITY
     Route: 048
  5. ATORVASTATIN [Concomitant]
     Active Substance: ATORVASTATIN
     Indication: BLOOD CHOLESTEROL ABNORMAL
     Route: 048
  6. NORTRIPTYLINE [Concomitant]
     Active Substance: NORTRIPTYLINE
     Indication: BACK PAIN
     Route: 048
     Dates: start: 20160120
  7. LANSOPRAZOLE. [Concomitant]
     Active Substance: LANSOPRAZOLE
     Indication: ANTACID THERAPY
     Route: 048
  8. ZOPICLONE [Concomitant]
     Active Substance: ZOPICLONE
     Indication: VERTEBRAL FORAMINAL STENOSIS
     Dosage: DAILY DOSE: 7.5 MG (MAX.) PRN
     Route: 048
  9. DICLOFENAC [Concomitant]
     Active Substance: DICLOFENAC
     Indication: BACK PAIN
     Route: 048
  10. EMPAGLIFLOZIN [Suspect]
     Active Substance: EMPAGLIFLOZIN
     Indication: TYPE 1 DIABETES MELLITUS
     Route: 065
  11. TRAMADOL. [Concomitant]
     Active Substance: TRAMADOL
     Indication: BACK PAIN
     Route: 048
  12. CORSODYL [Concomitant]
     Active Substance: CHLORHEXIDINE GLUCONATE
     Indication: GINGIVAL DISORDER
     Route: 065

REACTIONS (1)
  - Deafness [Not Recovered/Not Resolved]

NARRATIVE: CASE EVENT DATE: 20161028
